FAERS Safety Report 8440886-7 (Version None)
Quarter: 2012Q2

REPORT INFORMATION
  Report Type: 
  Country: None (occurrence: None)
  Receive Date: 20120615
  Receipt Date: 20110514
  Transmission Date: 20120825
  Serious: No
  Sender: FDA-Public Use
  Company Number: US-NOVEN-11US002452

PATIENT
  Sex: Male

DRUGS (2)
  1. FLOVENT [Concomitant]
     Indication: ASTHMA
     Dosage: 4 PUFFS DAILY
     Route: 050
     Dates: start: 20070101
  2. DAYTRANA [Suspect]
     Indication: ATTENTION DEFICIT/HYPERACTIVITY DISORDER
     Dosage: 15 MG, QD
     Route: 062
     Dates: start: 20110514, end: 20110514

REACTIONS (6)
  - DRUG INEFFECTIVE [None]
  - DISTURBANCE IN ATTENTION [None]
  - DRUG ADMINISTERED AT INAPPROPRIATE SITE [None]
  - PRODUCT QUALITY ISSUE [None]
  - DISTURBANCE IN SOCIAL BEHAVIOUR [None]
  - DRUG PRESCRIBING ERROR [None]
